APPROVED DRUG PRODUCT: HYTRIN
Active Ingredient: TERAZOSIN HYDROCHLORIDE
Strength: EQ 5MG BASE
Dosage Form/Route: TABLET;ORAL
Application: N019057 | Product #003
Applicant: ABBOTT LABORATORIES PHARMACEUTICAL PRODUCTS DIV
Approved: Aug 7, 1987 | RLD: No | RS: No | Type: DISCN